FAERS Safety Report 19441411 (Version 1)
Quarter: 2021Q2

REPORT INFORMATION
  Report Type: Spontaneous
  Country: US (occurrence: US)
  Receive Date: 20210621
  Receipt Date: 20210621
  Transmission Date: 20210717
  Serious: Yes (Other)
  Sender: FDA-Public Use
  Company Number: US-BEH-2021133145

PATIENT
  Age: 49 Year
  Sex: Female

DRUGS (1)
  1. PRIVIGEN [Suspect]
     Active Substance: HUMAN IMMUNOGLOBULIN G
     Dosage: 40 GRAM(0.5G/KG), QD (OVER 4 CONSECUTIVE DAYS)
     Route: 065
     Dates: start: 20200323, end: 20200326

REACTIONS (3)
  - Dizziness [Unknown]
  - Delayed haemolytic transfusion reaction [Unknown]
  - Nausea [Unknown]
